FAERS Safety Report 12929357 (Version 1)
Quarter: 2016Q4

REPORT INFORMATION
  Report Type: Spontaneous
  Country: JP (occurrence: JP)
  Receive Date: 20161110
  Receipt Date: 20161110
  Transmission Date: 20170207
  Serious: Yes (Other)
  Sender: FDA-Public Use
  Company Number: JP-ROCHE-1852599

PATIENT
  Age: 75 Year
  Sex: Male

DRUGS (1)
  1. ACTIVACIN [Suspect]
     Active Substance: ALTEPLASE
     Indication: THROMBOLYSIS
     Dosage: 42000IU/0.07 ML
     Route: 042

REACTIONS (4)
  - Macular hole [Recovering/Resolving]
  - Vitreous haemorrhage [Unknown]
  - Retinal aneurysm [Unknown]
  - Retinal haemorrhage [Unknown]
